FAERS Safety Report 8444432-3 (Version None)
Quarter: 2012Q2

REPORT INFORMATION
  Report Type: 
  Country: None (occurrence: None)
  Receive Date: 20120618
  Receipt Date: 20120608
  Transmission Date: 20120825
  Serious: Yes (Hospitalization)
  Sender: FDA-Public Use
  Company Number: US-ASTRAZENECA-2012SE33147

PATIENT
  Age: 82 Year
  Sex: Female

DRUGS (1)
  1. NEXIUM [Suspect]
     Route: 048

REACTIONS (5)
  - OFF LABEL USE [None]
  - INTENTIONAL DRUG MISUSE [None]
  - DIVERTICULITIS [None]
  - THERAPEUTIC RESPONSE DECREASED [None]
  - GASTROOESOPHAGEAL REFLUX DISEASE [None]
